FAERS Safety Report 8595564-0 (Version None)
Quarter: 2012Q3

REPORT INFORMATION
  Report Type: 
  Country: None (occurrence: None)
  Receive Date: 20120815
  Receipt Date: 20120806
  Transmission Date: 20120928
  Serious: Yes (Hospitalization)
  Sender: FDA-Public Use
  Company Number: US-US-EMD SERONO, INC.-7116301

PATIENT
  Sex: Female
  Weight: 108 kg

DRUGS (2)
  1. REBIF [Suspect]
     Indication: MULTIPLE SCLEROSIS
     Route: 058
     Dates: start: 20100806
  2. LUPRON [Concomitant]
     Indication: UTERINE LEIOMYOMA
     Dates: start: 20120101

REACTIONS (6)
  - URINE ODOUR ABNORMAL [None]
  - INCISION SITE INFECTION [None]
  - DIZZINESS [None]
  - ABORTION SPONTANEOUS [None]
  - PAIN IN EXTREMITY [None]
  - MATERNAL EXPOSURE DURING PREGNANCY [None]
